FAERS Safety Report 4900490-1 (Version None)
Quarter: 2006Q1

REPORT INFORMATION
  Report Type: 
  Country: None (occurrence: None)
  Receive Date: 20060203
  Receipt Date: 20060125
  Transmission Date: 20060701
  Serious: Yes (Other)
  Sender: FDA-Public Use
  Company Number: JP-MERCK-0601USA03447

PATIENT
  Age: 6 Year
  Sex: Male
  Weight: 18 kg

DRUGS (10)
  1. HYDROCORTONE SODIUM PHOSPHATE [Suspect]
     Indication: ACUTE LYMPHOCYTIC LEUKAEMIA
     Route: 051
     Dates: start: 20031225
  2. PREDNISOLONE [Suspect]
     Indication: ACUTE LYMPHOCYTIC LEUKAEMIA
     Route: 065
     Dates: start: 20031201
  3. VINCRISTINE SULFATE [Suspect]
     Indication: ACUTE LYMPHOCYTIC LEUKAEMIA
     Route: 051
     Dates: start: 20031201
  4. PIRARUBICIN [Suspect]
     Indication: ACUTE LYMPHOCYTIC LEUKAEMIA
     Route: 051
     Dates: start: 20031201
  5. CYCLOPHOSPHAMIDE [Suspect]
     Indication: ACUTE LYMPHOCYTIC LEUKAEMIA
     Route: 065
     Dates: start: 20031201
  6. ASPARAGINASE (AS DRUG) [Suspect]
     Indication: ACUTE LYMPHOCYTIC LEUKAEMIA
     Route: 051
     Dates: start: 20031201
  7. METHOTREXATE [Suspect]
     Indication: ACUTE LYMPHOCYTIC LEUKAEMIA
     Route: 065
     Dates: start: 20031201
  8. GRANULOCYTE COLONY STIMULATING FACTOR (UNSPECIFIED) [Suspect]
     Indication: ACUTE LYMPHOCYTIC LEUKAEMIA
     Route: 065
     Dates: start: 20031201
  9. CYTARABINE [Suspect]
     Indication: ACUTE LYMPHOCYTIC LEUKAEMIA
     Route: 051
     Dates: start: 20031201
  10. DECADRON [Suspect]
     Indication: ACUTE LYMPHOCYTIC LEUKAEMIA
     Route: 048
     Dates: start: 20031201

REACTIONS (3)
  - HYPERTENSION [None]
  - PANCREATITIS ACUTE [None]
  - REVERSIBLE POSTERIOR LEUKOENCEPHALOPATHY SYNDROME [None]
